FAERS Safety Report 8248560-7 (Version None)
Quarter: 2012Q1

REPORT INFORMATION
  Report Type: 
  Country: None (occurrence: None)
  Receive Date: 20120330
  Receipt Date: 20120321
  Transmission Date: 20120608
  Serious: Yes (Hospitalization)
  Sender: FDA-Public Use
  Company Number: CH-RB-037185-12

PATIENT
  Age: 60 Year
  Sex: Male

DRUGS (24)
  1. BUPRENORPHINE [Suspect]
     Dosage: 70 MCG/H
     Route: 062
     Dates: start: 20111120
  2. BUPRENORPHINE HCL [Suspect]
     Indication: HUMERUS FRACTURE
     Dosage: 0.4 MG AS NECESSARY
     Route: 048
     Dates: start: 20111019
  3. METOPROLOL SUCCINATE [Concomitant]
     Indication: ESSENTIAL HYPERTENSION
     Route: 048
  4. SIMCORA [Concomitant]
     Route: 048
     Dates: end: 20111014
  5. LAXOBERON [Concomitant]
     Indication: PROPHYLAXIS
     Route: 048
     Dates: start: 20111022
  6. DEXAMETHASONE SODIUM PHOSPHATE [Concomitant]
     Indication: MULTIPLE MYELOMA
     Dosage: 640 MG TOTAL, 40 MG OVER 16 DAYS FROM 18-OCT-2011 TO 19-NOV-2011
     Route: 048
     Dates: start: 20111018, end: 20111119
  7. BUPRENORPHINE [Suspect]
     Indication: HUMERUS FRACTURE
     Dosage: 105 MCG/H
     Route: 062
     Dates: start: 20111024, end: 20111119
  8. ALLOPURINOL [Concomitant]
     Indication: PROPHYLAXIS
     Route: 048
     Dates: start: 20111106, end: 20111107
  9. SODIUM POLYSTYRENE SULFONATE [Concomitant]
     Indication: RENAL FAILURE ACUTE
     Route: 048
     Dates: start: 20111022, end: 20111023
  10. ROCEPHIN [Concomitant]
     Indication: PNEUMONIA
     Route: 041
     Dates: start: 20111103, end: 20111110
  11. TORSEMIDE [Concomitant]
     Indication: ESSENTIAL HYPERTENSION
     Route: 048
     Dates: start: 20111115, end: 20111118
  12. THALIDOMIDE [Suspect]
     Route: 048
     Dates: start: 20111108, end: 20111120
  13. TAMSULOSIN HCL [Concomitant]
     Indication: BENIGN PROSTATIC HYPERPLASIA
     Route: 048
  14. ACETAMINOPHEN [Concomitant]
     Indication: HUMERUS FRACTURE
     Route: 048
     Dates: start: 20111014
  15. LISTRIL PLUS [Concomitant]
     Indication: ESSENTIAL HYPERTENSION
     Route: 048
     Dates: end: 20111014
  16. TAZOBACTAM [Concomitant]
     Indication: PNEUMONIA
     Route: 041
     Dates: start: 20111025, end: 20111102
  17. NORVASC [Concomitant]
     Indication: ESSENTIAL HYPERTENSION
     Route: 048
     Dates: start: 20111021
  18. SIMCORA [Concomitant]
     Indication: HYPERCHOLESTEROLAEMIA
     Route: 048
     Dates: start: 20111118
  19. VALTREX [Concomitant]
     Indication: PROPHYLAXIS
     Route: 048
     Dates: start: 20111105
  20. THALIDOMIDE [Suspect]
     Indication: MULTIPLE MYELOMA
     Route: 048
     Dates: start: 20111026, end: 20111030
  21. VELCADE [Suspect]
     Indication: MULTIPLE MYELOMA
     Dosage: DOSE: 20.8 MG TOTAL; 1.3MG/M2 = 2.6 MG OVER 8 DAYS FROM 18-OCT-2011-18-NOV-2011
     Route: 058
     Dates: start: 20111018, end: 20111118
  22. RENAGEL [Concomitant]
     Indication: RENAL FAILURE ACUTE
     Route: 048
     Dates: start: 20111022, end: 20111101
  23. ATORVASTATIN CALCIUM [Concomitant]
     Indication: HYPERCHOLESTEROLAEMIA
     Route: 048
     Dates: start: 20111014, end: 20111118
  24. THALIDOMIDE [Suspect]
     Route: 048
     Dates: start: 20111105, end: 20111107

REACTIONS (4)
  - CONSTIPATION [None]
  - POLYNEUROPATHY [None]
  - ILEUS PARALYTIC [None]
  - IMPAIRED GASTRIC EMPTYING [None]
